FAERS Safety Report 5621094-1 (Version None)
Quarter: 2008Q1

REPORT INFORMATION
  Report Type: 
  Country: None (occurrence: None)
  Receive Date: 20080114
  Receipt Date: 20061230
  Transmission Date: 20080703
  Serious: Yes (Hospitalization)
  Sender: FDA-Public Use
  Company Number: A03200700121

PATIENT
  Age: 59 Year
  Sex: Female
  Weight: 63.5036 kg

DRUGS (10)
  1. PLAVIX [Suspect]
     Indication: MYOCARDIAL INFARCTION
     Dosage: 75 MG QD-ORAL
     Route: 048
     Dates: start: 20050101, end: 20060101
  2. METFORMIN HCL [Concomitant]
  3. IBUPROFEN [Concomitant]
  4. PAPAVERINE [Concomitant]
  5. LISINOPRIL [Concomitant]
  6. LEVOTHYROXINE SODIUM [Concomitant]
  7. IRON [Concomitant]
  8. MECLIZINE [Concomitant]
  9. ATORVASTATIN CALCIUM [Concomitant]
  10. METFORMIN HCL [Concomitant]

REACTIONS (4)
  - HAEMATEMESIS [None]
  - HAEMATOCHEZIA [None]
  - INTESTINAL HAEMORRHAGE [None]
  - MOUTH HAEMORRHAGE [None]
